FAERS Safety Report 7825052-8 (Version None)
Quarter: 2011Q4

REPORT INFORMATION
  Report Type: 
  Country: None (occurrence: None)
  Receive Date: 20111014
  Receipt Date: 20111003
  Transmission Date: 20120403
  Serious: Yes (Hospitalization)
  Sender: FDA-Public Use
  Company Number: 2011AP001222

PATIENT
  Age: 43 Year
  Sex: Female

DRUGS (5)
  1. CITALOPRAM HYDROBROMIDE [Suspect]
     Indication: DEPRESSION
     Dosage: 10 MG; UNKNOWN
     Dates: start: 20110407
  2. CANDESARTAN CILEXETIL [Concomitant]
  3. CITALOPRAM HYDROBROMIDE [Concomitant]
  4. CITALOPRAM HYDROBROMIDE [Suspect]
     Indication: DEPRESSION
     Dosage: 20 MG; UNKNOWN
  5. CANDESARTAN CILEXETIL [Concomitant]

REACTIONS (3)
  - ACUTE PSYCHOSIS [None]
  - AGITATION [None]
  - MALAISE [None]
